FAERS Safety Report 8001762-7 (Version None)
Quarter: 2011Q4

REPORT INFORMATION
  Report Type: 
  Country: None (occurrence: None)
  Receive Date: 20111222
  Receipt Date: 20111212
  Transmission Date: 20120403
  Serious: Yes (Hospitalization, Other)
  Sender: FDA-Public Use
  Company Number: US-AMGEN-USASP2011066103

PATIENT
  Age: 60 Year
  Sex: Female

DRUGS (3)
  1. EPOGEN [Suspect]
     Dosage: 20000 IU, UNK
     Dates: start: 20070101
  2. EPOGEN [Suspect]
     Dosage: 60000 IU, UNK
     Dates: start: 20110101
  3. EPOGEN [Suspect]
     Indication: RENAL FAILURE CHRONIC

REACTIONS (3)
  - HOSPITALISATION [None]
  - BREAST CANCER [None]
  - BREAST CANCER METASTATIC [None]
